FAERS Safety Report 7220528-9 (Version None)
Quarter: 2011Q1

REPORT INFORMATION
  Report Type: 
  Country: None (occurrence: None)
  Receive Date: 20110111
  Receipt Date: 20110106
  Transmission Date: 20110831
  Serious: Yes (Hospitalization)
  Sender: FDA-Public Use
  Company Number: FR-ABBOTT-11P-056-0695735-00

PATIENT
  Age: 45 Year
  Sex: Male

DRUGS (4)
  1. DEPAKOTE [Suspect]
     Indication: PRODUCT USED FOR UNKNOWN INDICATION
     Dosage: 500 MILLIGRAM(S), 3 TIMES A DAY
     Route: 048
     Dates: start: 20101205, end: 20101210
  2. METHADONE [Concomitant]
     Indication: PRODUCT USED FOR UNKNOWN INDICATION
  3. STILNOX [Concomitant]
     Indication: PRODUCT USED FOR UNKNOWN INDICATION
  4. ZYPREXA [Suspect]
     Indication: EPILEPSY
     Route: 048
     Dates: start: 20101205, end: 20101210

REACTIONS (2)
  - PYREXIA [None]
  - RHABDOMYOLYSIS [None]
